FAERS Safety Report 20007020 (Version 1)
Quarter: 2021Q4

REPORT INFORMATION
  Report Type: Spontaneous
  Country: CN (occurrence: CN)
  Receive Date: 20211028
  Receipt Date: 20211028
  Transmission Date: 20220304
  Serious: Yes (Other)
  Sender: FDA-Public Use
  Company Number: 2021A779371

PATIENT
  Age: 64 Year
  Sex: Female

DRUGS (1)
  1. GEFITINIB [Suspect]
     Active Substance: GEFITINIB
     Indication: Lung adenocarcinoma stage IV
     Route: 048
     Dates: start: 201407

REACTIONS (6)
  - EGFR gene mutation [Unknown]
  - Metastases to ovary [Unknown]
  - Metastases to peritoneum [Unknown]
  - Metastases to bladder [Unknown]
  - Metastases to uterus [Unknown]
  - Intestinal metastasis [Unknown]

NARRATIVE: CASE EVENT DATE: 20160601
